FAERS Safety Report 6870986-4 (Version None)
Quarter: 2010Q3

REPORT INFORMATION
  Report Type: 
  Country: None (occurrence: None)
  Receive Date: 20100723
  Receipt Date: 20100715
  Transmission Date: 20110219
  Serious: Yes (Life-Threatening, Hospitalization, Disabling, Other)
  Sender: FDA-Public Use
  Company Number: GB-PFIZER INC-2007069157

PATIENT
  Age: 53 Year
  Sex: Male

DRUGS (9)
  1. LIPITOR [Suspect]
     Indication: HYPERCHOLESTEROLAEMIA
     Dosage: 20 MG, 1X/DAY
     Route: 048
     Dates: start: 20050901, end: 20060401
  2. LIPITOR [Interacting]
     Dosage: 80 MG, 1X/DAY
     Route: 048
     Dates: start: 20060401, end: 20070302
  3. WARFARIN [Interacting]
     Indication: CEREBROVASCULAR ACCIDENT PROPHYLAXIS
     Dosage: UNK
     Dates: start: 20050509
  4. ALLOPURINOL [Concomitant]
     Indication: PROPHYLAXIS
     Dosage: 100 MG, 1X/DAY
     Route: 048
     Dates: start: 20060319
  5. ASPIRIN [Concomitant]
     Indication: CEREBROVASCULAR ACCIDENT PROPHYLAXIS
     Dosage: 75 MG, 1X/DAY
     Route: 048
     Dates: start: 20060502
  6. BENDROFLUMETHIAZIDE [Concomitant]
     Indication: HYPERTENSION
     Dosage: 25 MG, 1X/DAY
  7. BISOPROLOL [Concomitant]
     Dosage: 1.25MG, UNK
     Route: 048
  8. LANSOPRAZOLE [Concomitant]
     Dosage: 30 MG, 1X/DAY
  9. NAPROXEN [Concomitant]
     Dosage: 500 MG, 2X/DAY

REACTIONS (13)
  - ATRIAL SEPTAL DEFECT [None]
  - CARDIAC ARREST [None]
  - CEREBROVASCULAR ACCIDENT [None]
  - DIABETES MELLITUS [None]
  - DRUG INTERACTION [None]
  - ERYTHEMA [None]
  - MUSCLE SPASMS [None]
  - MYOPATHY [None]
  - OVERWEIGHT [None]
  - PARALYSIS [None]
  - RENAL FAILURE [None]
  - RESPIRATORY FAILURE [None]
  - RHABDOMYOLYSIS [None]
